FAERS Safety Report 19032515 (Version 1)
Quarter: 2021Q1

REPORT INFORMATION
  Report Type: Spontaneous
  Country: FR (occurrence: FR)
  Receive Date: 20210319
  Receipt Date: 20210319
  Transmission Date: 20210420
  Serious: Yes (Hospitalization)
  Sender: FDA-Public Use
  Company Number: FR-ASTRAZENECA-2021A132580

PATIENT
  Age: 1 Day
  Sex: Female
  Weight: 2.2 kg

DRUGS (3)
  1. SUBUTEX [Suspect]
     Active Substance: BUPRENORPHINE HYDROCHLORIDE
     Indication: PRODUCT SUBSTITUTION
     Route: 064
     Dates: start: 20200531, end: 20210125
  2. SERESTA [Suspect]
     Active Substance: OXAZEPAM
     Indication: PRODUCT USED FOR UNKNOWN INDICATION
     Dosage: CF COMMENT
     Route: 064
     Dates: start: 20200531, end: 20210125
  3. XEROQUEL LP [Suspect]
     Active Substance: QUETIAPINE FUMARATE
     Indication: DEPRESSION
     Route: 064
     Dates: start: 20200531, end: 20210125

REACTIONS (4)
  - Respiratory distress [Recovered/Resolved]
  - Foetal heart rate disorder [Recovered/Resolved]
  - Withdrawal syndrome [Recovered/Resolved]
  - Premature baby [Recovered/Resolved]

NARRATIVE: CASE EVENT DATE: 202101
